FAERS Safety Report 16398304 (Version 1)
Quarter: 2019Q2

REPORT INFORMATION
  Report Type: Spontaneous
  Country: US (occurrence: US)
  Receive Date: 20190606
  Receipt Date: 20190606
  Transmission Date: 20190711
  Serious: No
  Sender: FDA-Public Use
  Company Number: US-ALEMBIC PHARMACUETICALS LIMITED-2019SCAL000328

PATIENT

DRUGS (1)
  1. DOXYCYCLINE HYCLATE. [Suspect]
     Active Substance: DOXYCYCLINE HYCLATE
     Indication: WOUND
     Dosage: 100 MILLIGRAM, OD
     Route: 048
     Dates: start: 20190329, end: 20190426

REACTIONS (2)
  - Drug ineffective [Unknown]
  - Wound complication [Recovering/Resolving]

NARRATIVE: CASE EVENT DATE: 2019
